FAERS Safety Report 20235719 (Version 4)
Quarter: 2022Q1

REPORT INFORMATION
  Report Type: Spontaneous
  Country: US (occurrence: US)
  Receive Date: 20211228
  Receipt Date: 20220124
  Transmission Date: 20220423
  Serious: No
  Sender: FDA-Public Use
  Company Number: US-BIOGEN-2021BI01071195

PATIENT
  Sex: Female

DRUGS (3)
  1. VUMERITY [Suspect]
     Active Substance: DIROXIMEL FUMARATE
     Indication: Multiple sclerosis
     Dosage: STARTER DOSE
     Route: 048
     Dates: start: 20211117
  2. VUMERITY [Suspect]
     Active Substance: DIROXIMEL FUMARATE
     Dosage: MAINTENANCE DOSE
     Route: 048
     Dates: start: 2021, end: 202201
  3. PROZAC [Concomitant]
     Active Substance: FLUOXETINE HYDROCHLORIDE
     Route: 065

REACTIONS (11)
  - Product dose omission issue [Unknown]
  - Flushing [Not Recovered/Not Resolved]
  - Swelling face [Unknown]
  - Fatigue [Unknown]
  - Drug intolerance [Unknown]
  - Lacrimation increased [Unknown]
  - Feeling hot [Unknown]
  - Pruritus [Unknown]
  - Erythema [Unknown]
  - Hot flush [Unknown]
  - Hypersensitivity [Unknown]

NARRATIVE: CASE EVENT DATE: 20210101
